FAERS Safety Report 17523988 (Version 2)
Quarter: 2020Q1

REPORT INFORMATION
  Report Type: Spontaneous
  Country: DE (occurrence: DE)
  Receive Date: 20200311
  Receipt Date: 20200317
  Transmission Date: 20200409
  Serious: Yes (Other)
  Sender: FDA-Public Use
  Company Number: DE-PFIZER INC-2020097485

PATIENT

DRUGS (2)
  1. CYTOTEC [Suspect]
     Active Substance: MISOPROSTOL
     Indication: LABOUR INDUCTION
  2. CYTOTEC [Suspect]
     Active Substance: MISOPROSTOL
     Indication: PRE-ECLAMPSIA
     Dosage: 4 DF, TOTAL (ONE TABLET 3 TIMES A DAY FOR TWO DAYS)
     Route: 064
     Dates: start: 20170325, end: 20170327

REACTIONS (6)
  - Muscle tightness [Unknown]
  - Apgar score low [Unknown]
  - Foetal exposure during delivery [Unknown]
  - Birth trauma [Recovering/Resolving]
  - Heart rate decreased [Recovering/Resolving]
  - Neonatal disorder [Unknown]

NARRATIVE: CASE EVENT DATE: 20170325
